FAERS Safety Report 18216959 (Version 1)
Quarter: 2020Q3

REPORT INFORMATION
  Report Type: Spontaneous
  Country: US (occurrence: US)
  Receive Date: 20200831
  Receipt Date: 20200831
  Transmission Date: 20201103
  Serious: Yes (Hospitalization)
  Sender: FDA-Public Use
  Company Number: None

PATIENT
  Age: 53 Year
  Sex: Male
  Weight: 153 kg

DRUGS (2)
  1. IOHEXOL (IOHEXOL 755MG/ML INJ) [Suspect]
     Active Substance: IOHEXOL
     Indication: X-RAY WITH CONTRAST
     Dates: start: 20200528, end: 20200528
  2. FUROSEMIDE (FUROSEMIDE 40MG TAB) [Suspect]
     Active Substance: FUROSEMIDE
     Indication: CARDIAC FAILURE CONGESTIVE
     Route: 048
     Dates: start: 20190823, end: 20200528

REACTIONS (4)
  - Diarrhoea [None]
  - Creatinine renal clearance increased [None]
  - Dehydration [None]
  - Acute kidney injury [None]

NARRATIVE: CASE EVENT DATE: 20200528
